FAERS Safety Report 6440462-1 (Version None)
Quarter: 2009Q4

REPORT INFORMATION
  Report Type: 
  Country: None (occurrence: None)
  Receive Date: 20091113
  Receipt Date: 20091104
  Transmission Date: 20100525
  Serious: Yes (Hospitalization)
  Sender: FDA-Public Use
  Company Number: GB-PFIZER INC-2009294759

PATIENT
  Age: 67 Year
  Sex: Male

DRUGS (4)
  1. NICOTINE [Suspect]
     Indication: SMOKING CESSATION THERAPY
     Dosage: ONE CARTRIDGE PER DAY
     Route: 055
     Dates: start: 20090401
  2. LEVOFLOXACIN [Concomitant]
     Indication: HYPOAESTHESIA
     Dosage: UNSPECIFIED
     Route: 065
  3. OMEPRAZOLE [Concomitant]
     Indication: GALLBLADDER OPERATION
     Dosage: 20 MG, UNK
     Route: 065
     Dates: start: 20060101
  4. SIMVASTATIN [Concomitant]
     Indication: BLOOD CHOLESTEROL
     Dosage: 40 MG, UNK
     Route: 065
     Dates: start: 20060101

REACTIONS (2)
  - ABDOMINAL PAIN UPPER [None]
  - BLOOD PRESSURE INCREASED [None]
